FAERS Safety Report 8566279-X (Version None)
Quarter: 2012Q3

REPORT INFORMATION
  Report Type: 
  Country: None (occurrence: None)
  Receive Date: 20120803
  Receipt Date: 20111129
  Transmission Date: 20120928
  Serious: No
  Sender: FDA-Public Use
  Company Number: US-ABBOTT-11P-163-0879287-00

PATIENT
  Sex: Male
  Weight: 81.72 kg

DRUGS (5)
  1. ASPIRIN [Concomitant]
     Indication: POLYMEDICATION
  2. LOSARTAN POTASSIUM [Concomitant]
     Indication: PRODUCT USED FOR UNKNOWN INDICATION
  3. NIASPAN [Suspect]
     Indication: BLOOD CHOLESTEROL INCREASED
     Dosage: AT BEDTIME, WILL RESTART ONCE PRESCRIPTION IS FILLED
     Dates: start: 20091101, end: 20110801
  4. LIPITOR [Concomitant]
     Indication: PRODUCT USED FOR UNKNOWN INDICATION
  5. SIMCOR [Suspect]
     Indication: BLOOD CHOLESTEROL INCREASED
     Dosage: WILL STOP ONCE NIASPAN IS REFILLED
     Dates: start: 20110801

REACTIONS (6)
  - SLEEP DISORDER [None]
  - PAIN [None]
  - FEELING COLD [None]
  - HEADACHE [None]
  - DIARRHOEA [None]
  - PILOERECTION [None]
